FAERS Safety Report 10261961 (Version 14)
Quarter: 2016Q3

REPORT INFORMATION
  Report Type: Report from Study
  Country: US (occurrence: US)
  Receive Date: 20140626
  Receipt Date: 20160719
  Transmission Date: 20161109
  Serious: Yes (Hospitalization, Other)
  Sender: FDA-Public Use
  Company Number: US-ACTELION-A-US2013-92821

PATIENT
  Age: 64 Year
  Sex: Female

DRUGS (10)
  1. TRACLEER [Suspect]
     Active Substance: BOSENTAN
     Dosage: UNK
     Route: 048
  2. ELIQUIS [Concomitant]
     Active Substance: APIXABAN
  3. TRACLEER [Suspect]
     Active Substance: BOSENTAN
     Dosage: UNK
     Route: 048
  4. COUMADIN [Concomitant]
     Active Substance: WARFARIN SODIUM
  5. VENTAVIS [Suspect]
     Active Substance: ILOPROST
     Indication: PULMONARY ARTERIAL HYPERTENSION
     Dosage: 5 MCG, 3-9XDAILY
     Route: 055
     Dates: start: 20091215
  6. LETAIRIS [Concomitant]
     Active Substance: AMBRISENTAN
  7. ASPIRIN. [Concomitant]
     Active Substance: ASPIRIN
  8. ADCIRCA [Concomitant]
     Active Substance: TADALAFIL
  9. TRACLEER [Suspect]
     Active Substance: BOSENTAN
     Indication: PULMONARY ARTERIAL HYPERTENSION
     Dosage: 125 MG, BID
     Route: 048
     Dates: start: 20110117
  10. VENTAVIS [Suspect]
     Active Substance: ILOPROST
     Dosage: 5 MCG, UNK
     Route: 055

REACTIONS (15)
  - Bedridden [Unknown]
  - Thrombosis [Unknown]
  - Hypotonia [Unknown]
  - Urinary tract infection [Unknown]
  - Fluid overload [Unknown]
  - Pulmonary hypertension [Unknown]
  - Fluid retention [Unknown]
  - Cardiac failure chronic [Unknown]
  - Cardiac failure congestive [Unknown]
  - Dyspnoea [Unknown]
  - Asthenia [Unknown]
  - Pain in extremity [Unknown]
  - Wound [Unknown]
  - Clostridium difficile infection [Unknown]
  - Oedema [Unknown]

NARRATIVE: CASE EVENT DATE: 20131217
